FAERS Safety Report 4389673-X (Version None)
Quarter: 2004Q2

REPORT INFORMATION
  Report Type: 
  Country: None (occurrence: None)
  Receive Date: 20040630
  Receipt Date: 20040614
  Transmission Date: 20050107
  Serious: Yes (Death)
  Sender: FDA-Public Use
  Company Number: 8240

PATIENT

DRUGS (3)
  1. LEUCOVORIN CALCIUM [Suspect]
     Indication: COLON CANCER
     Dosage: 200 MG/M2 PER_CYCLE IV
     Route: 042
  2. FLUOROURACIL [Suspect]
     Indication: COLON CANCER
     Dosage: 1000 MG/M2 PER_CYCLE IV
     Route: 042
  3. ELOXATIN [Suspect]
     Indication: COLON CANCER
     Dosage: 85 MG/M2 PER_CYCLE IV
     Route: 042

REACTIONS (3)
  - INFECTION [None]
  - NEUTROPENIA [None]
  - SEPSIS [None]
